FAERS Safety Report 5638636-2 (Version None)
Quarter: 2008Q1

REPORT INFORMATION
  Report Type: 
  Country: None (occurrence: None)
  Receive Date: 20080221
  Receipt Date: 20080221
  Transmission Date: 20080703
  Serious: Yes (Other)
  Sender: FDA-Public Use
  Company Number: None

PATIENT
  Sex: Male
  Weight: 91.81 kg

DRUGS (1)
  1. CYCLOPHOSPHAMIDE [Suspect]

REACTIONS (3)
  - MUCOSAL INFLAMMATION [None]
  - NAUSEA [None]
  - NO THERAPEUTIC RESPONSE [None]
